FAERS Safety Report 8967758 (Version 1)
Quarter: 2012Q4

REPORT INFORMATION
  Report Type: Spontaneous
  Country: DE (occurrence: None)
  Receive Date: 20121210
  Receipt Date: 20121210
  Transmission Date: 20130627
  Serious: Yes (Death)
  Sender: FDA-Public Use
  Company Number: 1509537

PATIENT
  Sex: Female
  Weight: 66 kg

DRUGS (2)
  1. VINORELBINE TARTRATE [Suspect]
     Indication: BREAST CANCER
     Route: 042
     Dates: start: 20121002, end: 20121026
  2. AVASTIN [Suspect]
     Indication: BREAST CANCER

REACTIONS (3)
  - Pulmonary embolism [None]
  - Disease progression [None]
  - Breast cancer [None]
